FAERS Safety Report 21197488 (Version 1)
Quarter: 2022Q3

REPORT INFORMATION
  Report Type: Spontaneous
  Country: KR (occurrence: KR)
  Receive Date: 20220810
  Receipt Date: 20220810
  Transmission Date: 20221027
  Serious: Yes (Other)
  Sender: FDA-Public Use
  Company Number: KR-DSJP-DSJ-2022-127984

PATIENT
  Age: 71 Year
  Sex: Male

DRUGS (1)
  1. EDOXABAN [Suspect]
     Active Substance: EDOXABAN
     Indication: Product used for unknown indication
     Dosage: 60 MG, DAILY
     Route: 048

REACTIONS (2)
  - Renal impairment [Not Recovered/Not Resolved]
  - Contusion [Not Recovered/Not Resolved]
